FAERS Safety Report 8018380-7 (Version None)
Quarter: 2011Q4

REPORT INFORMATION
  Report Type: 
  Country: None (occurrence: None)
  Receive Date: 20111228
  Receipt Date: 20111213
  Transmission Date: 20120403
  Serious: Yes (Hospitalization)
  Sender: FDA-Public Use
  Company Number: 1134626

PATIENT
  Age: 68 Year
  Sex: Male

DRUGS (5)
  1. MORPHINE SUL INJ [Suspect]
     Indication: PRODUCT USED FOR UNKNOWN INDICATION
  2. VICODIN [Suspect]
     Indication: PRODUCT USED FOR UNKNOWN INDICATION
  3. BACLOFEN [Suspect]
     Indication: PRODUCT USED FOR UNKNOWN INDICATION
  4. ANESTHETIC, GENERAL [Suspect]
     Indication: PRODUCT USED FOR UNKNOWN INDICATION
  5. AMBIEN [Suspect]
     Indication: PRODUCT USED FOR UNKNOWN INDICATION

REACTIONS (4)
  - OVERDOSE [None]
  - CONFUSIONAL STATE [None]
  - COMA [None]
  - DELUSION [None]
